FAERS Safety Report 17517473 (Version 3)
Quarter: 2020Q2

REPORT INFORMATION
  Report Type: Spontaneous
  Country: US (occurrence: US)
  Receive Date: 20200309
  Receipt Date: 20200416
  Transmission Date: 20200713
  Serious: No
  Sender: FDA-Public Use
  Company Number: US-SA-2020SA059759

PATIENT
  Age: 63 Year
  Sex: Female
  Weight: 86 kg

DRUGS (18)
  1. VITAMINS NOS [Concomitant]
     Active Substance: VITAMINS
     Dosage: 1 DF, QD
     Dates: start: 20040804
  2. DUPIXENT [Suspect]
     Active Substance: DUPILUMAB
     Dosage: 2 DF, 1X
     Dates: start: 20200327, end: 20200327
  3. PEPCID [Concomitant]
     Active Substance: FAMOTIDINE
     Dosage: 1 DF, BID
     Route: 048
     Dates: start: 20191201
  4. DOXEPIN [Concomitant]
     Active Substance: DOXEPIN
     Dosage: 1 DF, HS
     Route: 048
     Dates: start: 20190812
  5. FLUOCINOLONE [Concomitant]
     Active Substance: FLUOCINOLONE
     Dosage: 1 APPLICATION BY SCALP ROUTE TWICE DAILY AS NEEDED
     Dates: start: 20170407
  6. CELEXA [Concomitant]
     Active Substance: CITALOPRAM HYDROBROMIDE
     Dosage: 1 DF, QD
     Route: 048
     Dates: start: 20191108
  7. CLEOCIN [CLINDAMYCIN HYDROCHLORIDE] [Concomitant]
     Dosage: TAKE 2 CAPSULES ONE HOUR PRIOR TO PROCEDURE AND 2 CAPSULE ONE HOUR AFTER PROCEDURE
     Dates: start: 20190904
  8. CYANOCOBALAMIN. [Concomitant]
     Active Substance: CYANOCOBALAMIN
     Dosage: 1 ML, QOW
     Route: 030
     Dates: start: 20190719
  9. CLARINEX [Concomitant]
     Active Substance: DESLORATADINE
     Dosage: 1 DF, QD
     Route: 048
     Dates: start: 20190515
  10. DUPIXENT [Suspect]
     Active Substance: DUPILUMAB
     Dosage: 300 MG, QOW (INJECT 1 SYRINGE AT WEEK 2)
     Route: 058
     Dates: start: 2020, end: 202003
  11. ELOCON [Concomitant]
     Active Substance: MOMETASONE FUROATE
     Indication: SKIN IRRITATION
     Dosage: 135 MG, QD, 1 APPLICATION TO AFFECTED AREA ONCE DAILY AS NEEDED
     Route: 061
     Dates: start: 20141006
  12. DUPIXENT [Suspect]
     Active Substance: DUPILUMAB
     Indication: ASTHMA
     Dosage: INJECT 2 SYRINGES AT WEEK 0
     Route: 058
     Dates: start: 20200214, end: 20200214
  13. KENALOG [Concomitant]
     Active Substance: TRIAMCINOLONE ACETONIDE
     Dosage: APPLY 1 APPLICATION TO AFFECTED AREA TWICE DAILS AS NEEDED
     Route: 061
     Dates: start: 20160506
  14. COLACE [Concomitant]
     Active Substance: DOCUSATE SODIUM
     Dosage: 1 DF, TWICE DAILS AS NEEDED
     Route: 048
     Dates: start: 20190718
  15. RETIN-A [Concomitant]
     Active Substance: TRETINOIN
     Dosage: APPLY THIN LAYER TO FACE QHS
     Dates: start: 20181127
  16. ELOCON [Concomitant]
     Active Substance: MOMETASONE FUROATE
     Dosage: 135 MG, QD, 1 APPLICATION TO AFFECTED AREA ONCE DAILY AS NEEDED
     Route: 061
     Dates: start: 20170420
  17. VITAMIN C [Concomitant]
     Active Substance: ASCORBIC ACID
     Dosage: 500 MG, QD
     Route: 048
  18. CITRACAL + D [CALCIUM CITRATE;COLECALCIFEROL] [Concomitant]
     Active Substance: CALCIUM CITRATE\CHOLECALCIFEROL
     Dosage: 1 DF, QD
     Route: 048

REACTIONS (2)
  - Injection site pain [Recovered/Resolved]
  - Extra dose administered [Unknown]

NARRATIVE: CASE EVENT DATE: 20200303
